FAERS Safety Report 4829367-7 (Version None)
Quarter: 2005Q4

REPORT INFORMATION
  Report Type: 
  Country: None (occurrence: None)
  Receive Date: 20051116
  Receipt Date: 20051103
  Transmission Date: 20060501
  Serious: Yes (Hospitalization)
  Sender: FDA-Public Use
  Company Number: PHRM2005FR02907

PATIENT
  Age: 70 Year
  Sex: Female
  Weight: 75 kg

DRUGS (9)
  1. XELODA [Concomitant]
     Dosage: 2150 MG, BID
     Route: 048
     Dates: start: 20040501
  2. XELODA [Concomitant]
     Dosage: 1500 MG, BID
     Route: 048
  3. XELODA [Concomitant]
     Dosage: 1300 MG, BID
     Route: 048
     Dates: end: 20050401
  4. ARIMIDEX [Concomitant]
     Dates: start: 20030601, end: 20040501
  5. LYTOS [Concomitant]
     Dates: start: 20010701, end: 20020101
  6. TAMOXIFEN [Concomitant]
     Dates: start: 20010701, end: 20030601
  7. AREDIA [Suspect]
     Indication: BREAST CANCER
     Dosage: 90 MG QMO ALTERNATELY WITH ZOMETA
     Route: 042
     Dates: start: 20020101, end: 20050914
  8. ZOMETA [Suspect]
     Indication: BREAST CANCER
     Dosage: 4 MG QMO ALTERNATELY WITH AREDIA
     Route: 042
     Dates: start: 20020101, end: 20050914
  9. TAXOL [Concomitant]
     Dosage: 130 MG, QW
     Route: 042
     Dates: start: 20050401

REACTIONS (4)
  - DENTAL ALVEOLAR ANOMALY [None]
  - OSTEONECROSIS [None]
  - SINUS DISORDER [None]
  - TOOTH DISORDER [None]
